FAERS Safety Report 12669347 (Version 2)
Quarter: 2017Q3

REPORT INFORMATION
  Report Type: Spontaneous
  Country: US (occurrence: US)
  Receive Date: 20160819
  Receipt Date: 20170809
  Transmission Date: 20171127
  Serious: No
  Sender: FDA-Public Use
  Company Number: US-BAUSCH-BL-2016-011853

PATIENT
  Sex: Female
  Weight: 90.8 kg

DRUGS (2)
  1. GENERIC VALTREX [Concomitant]
     Indication: PRODUCT USED FOR UNKNOWN INDICATION
     Route: 048
  2. ZOVIRAX [Suspect]
     Active Substance: ACYCLOVIR
     Indication: ORAL HERPES
     Route: 061

REACTIONS (4)
  - Expired product administered [Unknown]
  - Product physical issue [Unknown]
  - Product container issue [Unknown]
  - Drug ineffective [Unknown]
